FAERS Safety Report 4438946-0 (Version None)
Quarter: 2004Q3

REPORT INFORMATION
  Report Type: 
  Country: None (occurrence: None)
  Receive Date: 20040830
  Receipt Date: 20040823
  Transmission Date: 20050211
  Serious: Yes (Life-Threatening, Hospitalization)
  Sender: FDA-Public Use
  Company Number: 2004GB01905

PATIENT
  Age: 28 Year
  Sex: Female

DRUGS (5)
  1. QUETIAPINE [Suspect]
  2. CLOZARIL [Suspect]
     Dosage: 1400 MG PO
     Route: 048
  3. ZOPICLONE [Suspect]
  4. THYROXINE [Concomitant]
  5. VENTOLIN [Concomitant]

REACTIONS (7)
  - AGITATION [None]
  - ALANINE AMINOTRANSFERASE INCREASED [None]
  - DYSTONIA [None]
  - HALLUCINATION, AUDITORY [None]
  - MULTIPLE DRUG OVERDOSE INTENTIONAL [None]
  - SELF-INJURIOUS IDEATION [None]
  - SUICIDE ATTEMPT [None]
